FAERS Safety Report 15280190 (Version 1)
Quarter: 2018Q3

REPORT INFORMATION
  Report Type: Spontaneous
  Country: IT (occurrence: IT)
  Receive Date: 20180815
  Receipt Date: 20180815
  Transmission Date: 20181010
  Serious: Yes (Other)
  Sender: FDA-Public Use
  Company Number: IT-PFIZER INC-2018322538

PATIENT
  Age: 60 Year
  Sex: Female

DRUGS (3)
  1. DOMPERIDONE [Suspect]
     Active Substance: DOMPERIDONE
     Dosage: 1 DF, DAILY
     Route: 048
     Dates: start: 20180707, end: 20180707
  2. XANAX [Suspect]
     Active Substance: ALPRAZOLAM
     Dosage: 10 MG, 1X/DAY
     Route: 048
     Dates: start: 20180707, end: 20180707
  3. PARIET [Suspect]
     Active Substance: RABEPRAZOLE SODIUM
     Dosage: 200 MG, 1X/DAY
     Route: 048
     Dates: start: 20180707, end: 20180707

REACTIONS (4)
  - Hypotension [Unknown]
  - Intentional self-injury [Unknown]
  - Intentional overdose [Unknown]
  - Sluggishness [Unknown]

NARRATIVE: CASE EVENT DATE: 20180707
